FAERS Safety Report 23421627 (Version 1)
Quarter: 2024Q1

REPORT INFORMATION
  Report Type: Spontaneous
  Country: US (occurrence: US)
  Receive Date: 20240119
  Receipt Date: 20240119
  Transmission Date: 20240410
  Serious: Yes (Other)
  Sender: FDA-Public Use
  Company Number: US-ELI_LILLY_AND_COMPANY-US202401005775

PATIENT
  Age: 68 Year
  Sex: Female

DRUGS (10)
  1. HUMULIN R U-500 [Suspect]
     Active Substance: INSULIN HUMAN
     Indication: Product used for unknown indication
     Dosage: UNK UNK, UNKNOWN
     Route: 065
  2. HUMULIN R U-500 [Suspect]
     Active Substance: INSULIN HUMAN
     Indication: Product used for unknown indication
     Dosage: UNK UNK, UNKNOWN
     Route: 065
  3. HUMULIN R U-500 [Suspect]
     Active Substance: INSULIN HUMAN
     Indication: Product used for unknown indication
     Dosage: UNK UNK, UNKNOWN
     Route: 065
  4. HUMULIN R U-500 [Suspect]
     Active Substance: INSULIN HUMAN
     Indication: Product used for unknown indication
     Dosage: UNK UNK, UNKNOWN
     Route: 065
  5. HUMULIN R U-500 [Suspect]
     Active Substance: INSULIN HUMAN
     Dosage: UNK UNK, UNKNOWN
     Route: 065
  6. HUMULIN R U-500 [Suspect]
     Active Substance: INSULIN HUMAN
     Dosage: UNK UNK, UNKNOWN
     Route: 065
  7. HUMULIN R U-500 [Suspect]
     Active Substance: INSULIN HUMAN
     Dosage: UNK UNK, UNKNOWN
     Route: 065
  8. HUMULIN R U-500 [Suspect]
     Active Substance: INSULIN HUMAN
     Dosage: UNK UNK, UNKNOWN
     Route: 065
  9. HUMULIN R U-500 [Suspect]
     Active Substance: INSULIN HUMAN
     Dosage: UNK UNK, UNKNOWN
     Route: 065
  10. HUMULIN R U-500 [Suspect]
     Active Substance: INSULIN HUMAN
     Dosage: UNK UNK, UNKNOWN
     Route: 065

REACTIONS (3)
  - Fall [Unknown]
  - Femur fracture [Unknown]
  - Lower limb fracture [Unknown]

NARRATIVE: CASE EVENT DATE: 20210101
